FAERS Safety Report 5060838-7 (Version None)
Quarter: 2006Q3

REPORT INFORMATION
  Report Type: 
  Country: None (occurrence: None)
  Receive Date: 20060725
  Receipt Date: 20060425
  Transmission Date: 20061208
  Serious: Yes (Hospitalization)
  Sender: FDA-Public Use
  Company Number: JP-JPN-A200601371

PATIENT
  Age: 83 Year
  Sex: Female
  Weight: 31 kg

DRUGS (9)
  1. VALTREX [Suspect]
     Indication: HERPES ZOSTER
     Dosage: 1000MG PER DAY
     Route: 048
     Dates: start: 20060421, end: 20060421
  2. ZOVIRAX [Suspect]
     Indication: ENCEPHALITIS HERPES
     Dosage: 200MG PER DAY
     Route: 042
     Dates: start: 20060422, end: 20060423
  3. SENNOSIDE [Suspect]
     Indication: CONSTIPATION
     Dosage: 1U PER DAY
     Route: 048
  4. CALTAN [Concomitant]
     Indication: HYPERPHOSPHATAEMIA
     Dosage: 3U PER DAY
     Route: 048
  5. BIOFERMIN [Concomitant]
     Indication: ENTEROCOLITIS
     Dosage: 3TABS PER DAY
     Route: 048
  6. ALFAROL [Concomitant]
     Indication: RENAL OSTEODYSTROPHY
     Dosage: 1CAP PER DAY
     Route: 048
  7. FERRO [Concomitant]
     Indication: IRON DEFICIENCY ANAEMIA
     Dosage: 1U PER DAY
     Route: 048
  8. BLOPRESS [Concomitant]
     Indication: HYPERTENSION
     Dosage: 4MG PER DAY
     Route: 048
  9. ZOVIRAX [Concomitant]
     Indication: HERPES ZOSTER
     Route: 061
     Dates: start: 20060417

REACTIONS (12)
  - ABASIA [None]
  - AFFECT LABILITY [None]
  - AGITATION [None]
  - BLOOD PRESSURE INCREASED [None]
  - COMMUNICATION DISORDER [None]
  - DEPRESSED LEVEL OF CONSCIOUSNESS [None]
  - DYSARTHRIA [None]
  - DYSLALIA [None]
  - GAIT DISTURBANCE [None]
  - MUSCULAR WEAKNESS [None]
  - NERVOUS SYSTEM DISORDER [None]
  - RESTLESSNESS [None]
